FAERS Safety Report 4411126-0 (Version None)
Quarter: 2004Q2

REPORT INFORMATION
  Report Type: 
  Country: None (occurrence: None)
  Receive Date: 20040630
  Receipt Date: 20040423
  Transmission Date: 20050107
  Serious: No
  Sender: FDA-Public Use
  Company Number: 04P-163-0258561-00

PATIENT
  Age: 54 Year
  Sex: Female
  Weight: 81.6475 kg

DRUGS (17)
  1. HUMIRA [Suspect]
     Indication: RHEUMATOID ARTHRITIS
     Dosage: 40 MG, 1 IN 2 WK, SUBCUTANEOUS
     Route: 058
     Dates: start: 20040202, end: 20040319
  2. HUMIRA [Suspect]
     Indication: RHEUMATOID ARTHRITIS
     Dosage: 40 MG, 1 IN 2 WK, SUBCUTANEOUS
     Route: 058
     Dates: start: 20040407, end: 20040413
  3. HUMIRA [Suspect]
     Indication: RHEUMATOID ARTHRITIS
     Dosage: 40 MG, 1 IN 2 WK, SUBCUTANEOUS
     Route: 058
     Dates: start: 20040427, end: 20040504
  4. CELECOXIB [Concomitant]
  5. PREDNISONE TAB [Concomitant]
  6. PHENYTOIN SODIUM [Concomitant]
  7. PHENOBARBITAL TAB [Concomitant]
  8. CITALOPRAM HYDROBROMIDE [Concomitant]
  9. RISEDRONATE SODIUM [Concomitant]
  10. METHOTREXATE [Concomitant]
  11. CRESTOR [Concomitant]
  12. FOLIC ACID [Concomitant]
  13. TOCOPHEROL CONCENTRATE CAP [Concomitant]
  14. ASCORBIC ACID [Concomitant]
  15. OSCAL +D [Concomitant]
  16. CENTRUM [Concomitant]
  17. ACETYLSALICYLIC  ACID [Concomitant]

REACTIONS (7)
  - CONDITION AGGRAVATED [None]
  - EXCORIATION [None]
  - FALL [None]
  - LOCALISED INFECTION [None]
  - RHEUMATOID NODULE [None]
  - SKIN INFECTION [None]
  - TOOTH INJURY [None]
